FAERS Safety Report 7121293-6 (Version None)
Quarter: 2010Q4

REPORT INFORMATION
  Report Type: 
  Country: None (occurrence: None)
  Receive Date: 20101122
  Receipt Date: 20101122
  Transmission Date: 20110411
  Serious: Yes (Life-Threatening, Hospitalization)
  Sender: FDA-Public Use
  Company Number: None

PATIENT
  Age: 32 Year
  Sex: Male

DRUGS (5)
  1. ZYPREXA [Suspect]
     Indication: SCHIZOPHRENIA, PARANOID TYPE
     Dosage: 15 MG AT BEDTIME PO
     Route: 048
     Dates: start: 20100706, end: 20100720
  2. OLANZAPINE [Concomitant]
  3. CITALOPRAM HYDROBROMIDE [Concomitant]
  4. DOCUSATE CALCIUM [Concomitant]
  5. MULTI-VITAMINS [Concomitant]

REACTIONS (2)
  - PANCYTOPENIA [None]
  - TREATMENT NONCOMPLIANCE [None]
